FAERS Safety Report 11417709 (Version 3)
Quarter: 2015Q4

REPORT INFORMATION
  Report Type: Spontaneous
  Country: US (occurrence: US)
  Receive Date: 20150825
  Receipt Date: 20151013
  Transmission Date: 20160304
  Serious: No
  Sender: FDA-Public Use
  Company Number: US-GLAXOSMITHKLINE-US2015120616

PATIENT
  Age: 61 Year
  Sex: Male

DRUGS (16)
  1. ALBUTEROL/IPRATROPIUM NEBULIZER [Concomitant]
     Active Substance: ALBUTEROL SULFATE\IPRATROPIUM BROMIDE
  2. DIGOXIN. [Concomitant]
     Active Substance: DIGOXIN
  3. PREDNISONE. [Concomitant]
     Active Substance: PREDNISONE
  4. ANORO ELLIPTA [Suspect]
     Active Substance: UMECLIDINIUM BROMIDE\VILANTEROL TRIFENATATE
     Indication: CHRONIC OBSTRUCTIVE PULMONARY DISEASE
     Dosage: 1 PUFF(S), QD
     Route: 055
     Dates: start: 20150818
  5. BUPROPION. [Concomitant]
     Active Substance: BUPROPION
  6. TAMSULOSIN [Concomitant]
     Active Substance: TAMSULOSIN
  7. LISINOPRIL. [Concomitant]
     Active Substance: LISINOPRIL
  8. TOPROL XL [Concomitant]
     Active Substance: METOPROLOL SUCCINATE
  9. INCRUSE ELLIPTA [Concomitant]
     Active Substance: UMECLIDINIUM BROMIDE
  10. SYMBICORT [Concomitant]
     Active Substance: BUDESONIDE\FORMOTEROL FUMARATE DIHYDRATE
  11. CHANTIX [Concomitant]
     Active Substance: VARENICLINE TARTRATE
  12. CITALOPRAM [Concomitant]
     Active Substance: CITALOPRAM HYDROBROMIDE
  13. LASIX [Concomitant]
     Active Substance: FUROSEMIDE
  14. OXYGEN. [Concomitant]
     Active Substance: OXYGEN
  15. ATORVASTATIN [Concomitant]
     Active Substance: ATORVASTATIN
  16. XARELTO [Concomitant]
     Active Substance: RIVAROXABAN

REACTIONS (2)
  - Dyspnoea [Unknown]
  - Drug ineffective [Unknown]

NARRATIVE: CASE EVENT DATE: 20150821
